FAERS Safety Report 5507976-X (Version None)
Quarter: 2007Q4

REPORT INFORMATION
  Report Type: 
  Country: None (occurrence: None)
  Receive Date: 20071106
  Receipt Date: 20071025
  Transmission Date: 20080405
  Serious: Yes (Hospitalization)
  Sender: FDA-Public Use
  Company Number: GR-AMGEN-US250635

PATIENT
  Age: 62 Year
  Sex: Female
  Weight: 70 kg

DRUGS (7)
  1. ENBREL [Suspect]
     Indication: RHEUMATOID ARTHRITIS
     Dosage: 50MG LYOPHILISED ONCE WEEKLY
     Route: 058
     Dates: start: 20070608, end: 20071001
  2. ENBREL [Suspect]
     Dosage: 50MG PREFILLED ONCE WEEKLY
     Route: 058
     Dates: start: 20071008, end: 20071008
  3. SIMVASTATIN [Concomitant]
  4. RABEPRAZOLE SODIUM [Concomitant]
     Dosage: 40MG DAILY
  5. SALAGEN [Concomitant]
     Dosage: 2.5MG DAILY
  6. NEORAL [Concomitant]
     Dosage: 200MG DAILY
  7. VOLTAREN [Concomitant]
     Dosage: 75MG DAILY

REACTIONS (3)
  - ERYTHEMA [None]
  - PRURITUS [None]
  - RASH VESICULAR [None]
